FAERS Safety Report 6451180-8 (Version None)
Quarter: 2009Q4

REPORT INFORMATION
  Report Type: 
  Country: None (occurrence: None)
  Receive Date: 20091123
  Receipt Date: 20091109
  Transmission Date: 20100525
  Serious: No
  Sender: FDA-Public Use
  Company Number: US-JNJFOC-20091103264

PATIENT
  Age: 53 Year
  Sex: Male
  Weight: 113.4 kg

DRUGS (1)
  1. DURAGESIC-100 [Suspect]
     Indication: PAIN
     Dosage: 2 100 UG/HR PATCHES
     Route: 062

REACTIONS (3)
  - APPLICATION SITE IRRITATION [None]
  - INAPPROPRIATE SCHEDULE OF DRUG ADMINISTRATION [None]
  - WRONG TECHNIQUE IN DRUG USAGE PROCESS [None]
